FAERS Safety Report 23440573 (Version 1)
Quarter: 2024Q1

REPORT INFORMATION
  Report Type: Spontaneous
  Country: BR (occurrence: BR)
  Receive Date: 20240125
  Receipt Date: 20240125
  Transmission Date: 20240409
  Serious: Yes (Death, Hospitalization, Other)
  Sender: FDA-Public Use
  Company Number: BR-AMGEN-BRASP2024013017

PATIENT
  Age: 65 Year
  Sex: Male

DRUGS (14)
  1. FILGRASTIM [Suspect]
     Active Substance: FILGRASTIM
     Indication: Leukopenia
     Dosage: UNK
     Route: 065
  2. CHLORAMBUCIL [Concomitant]
     Active Substance: CHLORAMBUCIL
     Dosage: 0.3 MILLIGRAM/KILOGRAM, QD, FIVE CONSECUTIVE DAYS EVERY FOUR WEEKS FOR A TOTAL OF FIVE MONTHS
     Route: 065
  3. CYCLOPHOSPHAMIDE [Concomitant]
     Active Substance: CYCLOPHOSPHAMIDE
     Dosage: 1200 MILLIGRAM, QD, FOR ONE DAY
     Route: 065
  4. CYCLOPHOSPHAMIDE [Concomitant]
     Active Substance: CYCLOPHOSPHAMIDE
     Dosage: 1200 MILLIGRAM, QD, FOR THREE CONSECUTIVE DAYS EVERY 28 DAYS
     Route: 065
  5. VINCRISTINE [Concomitant]
     Active Substance: VINCRISTINE
     Dosage: 1 MILLIGRAM, QD, FOR ONE DAY
     Route: 065
  6. PREDNISONE [Concomitant]
     Active Substance: PREDNISONE
     Dosage: 100 MILLIGRAM, QD, FOR FIVE DAYS EVERY 21 DAYS
  7. CEFEPIME [Concomitant]
     Active Substance: CEFEPIME HYDROCHLORIDE
     Dosage: 6 GRAM, QD, FOR FIVE DAYS
  8. CEFEPIME [Concomitant]
     Active Substance: CEFEPIME HYDROCHLORIDE
     Dosage: 6 GRAM, QD, FOR SEVEN DAYS
  9. VANCOMYCIN [Concomitant]
     Active Substance: VANCOMYCIN
     Dosage: 2 GRAM, QD, FOR TEN DAYS
     Route: 065
  10. IMIPENEM [Concomitant]
     Active Substance: IMIPENEM
     Dosage: 3 GRAM, QD, FOR TEN DAYS
     Route: 065
  11. FLUDARABINE [Concomitant]
     Active Substance: FLUDARABINE PHOSPHATE
     Dosage: 38 MILLIGRAM, QD, FOR THREE CONSECUTIVE DAYS EVERY 28 DAYS
     Route: 065
  12. DOXYCYCLINE [Concomitant]
     Active Substance: DOXYCYCLINE
     Dosage: 200 MILLIGRAM, QD, FOR SIX WEEKS
     Route: 065
  13. ERYTHROMYCIN [Concomitant]
     Active Substance: ERYTHROMYCIN
     Dosage: 2 GRAM, QD, FOR THREE WEEKS
     Route: 065
  14. GENTAMICIN [Concomitant]
     Active Substance: GENTAMICIN
     Dosage: 240 MILLIGRAM, QD, FOR THREE WEEKS
     Route: 065

REACTIONS (3)
  - Febrile neutropenia [Fatal]
  - Pancytopenia [Unknown]
  - Bacillary angiomatosis [Unknown]
